FAERS Safety Report 26115715 (Version 1)
Quarter: 2025Q4

REPORT INFORMATION
  Report Type: Spontaneous
  Country: EU (occurrence: EU)
  Receive Date: 20251203
  Receipt Date: 20251203
  Transmission Date: 20260117
  Serious: Yes (Other)
  Sender: BRISTOL-MYERS SQUIBB COMPANY
  Company Number: None

PATIENT
  Age: 48 Year
  Sex: Male

DRUGS (3)
  1. OPDIVO [Suspect]
     Active Substance: NIVOLUMAB
     Indication: Metastatic malignant melanoma
     Dosage: FIRST MONOTHERAPY 480 MG/4 WEEKS
     Route: 042
     Dates: start: 20250123, end: 20250530
  2. OPDIVO [Suspect]
     Active Substance: NIVOLUMAB
     Dosage: COMBINATION THERAPY 1 MG/KG BODY WEIGHT
     Route: 042
     Dates: start: 20250326, end: 20250530
  3. YERVOY [Suspect]
     Active Substance: IPILIMUMAB
     Indication: Metastatic malignant melanoma
     Dosage: 3 MG/KG BW
     Route: 042
     Dates: start: 20250326, end: 20250530

REACTIONS (1)
  - Toxic skin eruption [Recovered/Resolved]

NARRATIVE: CASE EVENT DATE: 20250530
